APPROVED DRUG PRODUCT: GARAMYCIN
Active Ingredient: GENTAMICIN SULFATE
Strength: EQ 40MG BASE/ML **Federal Register determination that product was not discontinued or withdrawn for safety or effectiveness reasons**
Dosage Form/Route: INJECTABLE;INJECTION
Application: A061716 | Product #001
Applicant: SCHERING CORP SUB SCHERING PLOUGH CORP
Approved: Approved Prior to Jan 1, 1982 | RLD: No | RS: No | Type: DISCN